FAERS Safety Report 11829932 (Version 1)
Quarter: 2015Q4

REPORT INFORMATION
  Report Type: Spontaneous
  Country: JP (occurrence: JP)
  Receive Date: 20151213
  Receipt Date: 20151213
  Transmission Date: 20160305
  Serious: Yes (Other)
  Sender: FDA-Public Use
  Company Number: JP-ASTRAZENECA-2015SF23938

PATIENT
  Sex: Male

DRUGS (1)
  1. NEXIUM [Suspect]
     Active Substance: ESOMEPRAZOLE MAGNESIUM
     Dosage: DOSE UNKNOWN
     Route: 048

REACTIONS (3)
  - Oculomucocutaneous syndrome [Not Recovered/Not Resolved]
  - Visual acuity reduced [Not Recovered/Not Resolved]
  - Cutaneous symptom [Recovered/Resolved]
